APPROVED DRUG PRODUCT: NAMENDA
Active Ingredient: MEMANTINE HYDROCHLORIDE
Strength: 10MG
Dosage Form/Route: TABLET;ORAL
Application: N021487 | Product #002 | TE Code: AB
Applicant: ABBVIE INC
Approved: Oct 16, 2003 | RLD: Yes | RS: Yes | Type: RX